FAERS Safety Report 6998348-X (Version None)
Quarter: 2010Q3

REPORT INFORMATION
  Report Type: 
  Country: None (occurrence: None)
  Receive Date: 20100920
  Receipt Date: 20100907
  Transmission Date: 20110219
  Serious: Yes (Other)
  Sender: FDA-Public Use
  Company Number: US-JNJFOC-20100902692

PATIENT
  Sex: Male
  Weight: 63.5 kg

DRUGS (8)
  1. REMICADE [Suspect]
     Indication: COLITIS ULCERATIVE
     Dosage: DOSE DOUBLED IN AUG-2010
     Route: 042
  2. REMICADE [Suspect]
     Route: 042
  3. OTHER DRUGS (UNSPECIFIED) [Concomitant]
  4. TRICOR [Concomitant]
  5. BYSTOLIC [Concomitant]
     Indication: CARDIAC DISORDER
  6. LOMOTIL [Concomitant]
     Indication: DIARRHOEA
  7. FLOMAX [Concomitant]
  8. ASPIRIN [Concomitant]
     Indication: CARDIAC DISORDER

REACTIONS (4)
  - BALANCE DISORDER [None]
  - COLITIS [None]
  - DIZZINESS [None]
  - PSORIASIS [None]
